FAERS Safety Report 6305795-8 (Version None)
Quarter: 2009Q3

REPORT INFORMATION
  Report Type: 
  Country: None (occurrence: None)
  Receive Date: 20090812
  Receipt Date: 20070821
  Transmission Date: 20100115
  Serious: Yes (Other)
  Sender: FDA-Public Use
  Company Number: US-ASTRAZENECA-2006UW11870

PATIENT
  Age: 29 Year
  Sex: Female
  Weight: 77.6 kg

DRUGS (11)
  1. SEROQUEL [Suspect]
     Indication: ANXIETY
     Route: 048
     Dates: start: 20030101, end: 20050101
  2. SEROQUEL [Suspect]
     Indication: BIPOLAR DISORDER
     Route: 048
     Dates: start: 20030101, end: 20050101
  3. SEROQUEL [Suspect]
     Dosage: 25-75 MG
     Route: 048
     Dates: start: 20050302
  4. SEROQUEL [Suspect]
     Dosage: 25-75 MG
     Route: 048
     Dates: start: 20050302
  5. ZOLOFT [Concomitant]
     Dates: start: 19970101
  6. HYDROCHLOROTHIAZIDE [Concomitant]
     Route: 048
     Dates: start: 20041111
  7. HYDROCODONE BITARTRATE + ACETAMINOPHEN [Concomitant]
     Dosage: 7.5-500 MG, ONE EVERY 4 HOURS AS NEEDED
     Route: 048
     Dates: start: 20050104
  8. TRAMADOL HCL [Concomitant]
     Indication: PAIN
     Dosage: 1 OR 2 EVERY 4 HOURS AS NEEDED
     Dates: start: 20050111
  9. ERGOTAMINE-CAFFEINE [Concomitant]
     Indication: HEADACHE
     Dosage: TAKE 2 AT ONSET OF HEADACHE.THEN 1 EVERY HALF HR IF NEEDED.DONT EXCEED 6 PER ATTACK OR 10 PER 24HR
     Dates: start: 20050413
  10. KENALOG [Concomitant]
     Dates: start: 20041111
  11. DECADRON [Concomitant]
     Dates: start: 20041111

REACTIONS (5)
  - BLOOD CHOLESTEROL INCREASED [None]
  - CARDIAC DISORDER [None]
  - DIABETES MELLITUS [None]
  - LOSS OF CONSCIOUSNESS [None]
  - OBESITY [None]
